FAERS Safety Report 23604460 (Version 2)
Quarter: 2025Q2

REPORT INFORMATION
  Report Type: Spontaneous
  Country: GB (occurrence: GB)
  Receive Date: 20240307
  Receipt Date: 20250402
  Transmission Date: 20250716
  Serious: Yes (Death, Life-Threatening)
  Sender: TEVA
  Company Number: None

PATIENT

DRUGS (1)
  1. AMBRISENTAN [Suspect]
     Active Substance: AMBRISENTAN
     Route: 065

REACTIONS (1)
  - Death [Fatal]
